FAERS Safety Report 15728952 (Version 1)
Quarter: 2018Q4

REPORT INFORMATION
  Report Type: Spontaneous
  Country: CH (occurrence: CH)
  Receive Date: 20181217
  Receipt Date: 20181217
  Transmission Date: 20190205
  Serious: Yes (Other)
  Sender: FDA-Public Use
  Company Number: PHHY2018CH178474

PATIENT
  Sex: Male

DRUGS (6)
  1. CONCERTA [Suspect]
     Active Substance: METHYLPHENIDATE HYDROCHLORIDE
     Indication: PRODUCT USED FOR UNKNOWN INDICATION
     Dosage: UNK
     Route: 065
  2. LEXOTANIL [Concomitant]
     Active Substance: BROMAZEPAM
     Indication: PRODUCT USED FOR UNKNOWN INDICATION
     Dosage: UNK
     Route: 065
  3. RITALIN [Suspect]
     Active Substance: METHYLPHENIDATE HYDROCHLORIDE
     Indication: PRODUCT USED FOR UNKNOWN INDICATION
     Dosage: 1 DF, BID ( CONCENTRATION 10 MG)
     Route: 065
  4. METHYLPHENIDATE SANDOZ [Suspect]
     Active Substance: METHYLPHENIDATE
     Indication: PRODUCT USED FOR UNKNOWN INDICATION
     Dosage: 20.5 MG, UNK
     Route: 065
  5. RITALIN [Suspect]
     Active Substance: METHYLPHENIDATE HYDROCHLORIDE
     Dosage: 1 DF, BID ( CONCENTRATION 5 MG)
     Route: 065
  6. COSENTYX [Suspect]
     Active Substance: SECUKINUMAB
     Indication: PSORIASIS
     Route: 065

REACTIONS (9)
  - Disturbance in attention [Not Recovered/Not Resolved]
  - Stomatitis [Not Recovered/Not Resolved]
  - Restlessness [Not Recovered/Not Resolved]
  - Sleep disorder [Not Recovered/Not Resolved]
  - Dysgeusia [Unknown]
  - Depressed mood [Not Recovered/Not Resolved]
  - Hyperhidrosis [Unknown]
  - Dizziness [Not Recovered/Not Resolved]
  - Palatal disorder [Not Recovered/Not Resolved]

NARRATIVE: CASE EVENT DATE: 20181003
